FAERS Safety Report 5794664-8 (Version None)
Quarter: 2008Q2

REPORT INFORMATION
  Report Type: 
  Country: None (occurrence: None)
  Receive Date: 20080627
  Receipt Date: 20080627
  Transmission Date: 20081010
  Serious: No
  Sender: FDA-Public Use
  Company Number: None

PATIENT
  Age: 61 Year
  Sex: Female
  Weight: 63 kg

DRUGS (8)
  1. MORPHINE [Suspect]
     Indication: POSTOPERATIVE ANALGESIA
     Dosage: 2-4MG  Q1HR PRN  IV
     Route: 042
     Dates: start: 20080607, end: 20080608
  2. NORCO [Concomitant]
  3. RESTORIL [Concomitant]
  4. SOMA [Concomitant]
  5. ZOFRAN [Concomitant]
  6. CEFAZOLIN [Concomitant]
  7. DSVR [Concomitant]
  8. GENTAMICIN [Concomitant]

REACTIONS (1)
  - BLOOD PRESSURE DECREASED [None]
